FAERS Safety Report 7067401-7 (Version None)
Quarter: 2010Q4

REPORT INFORMATION
  Report Type: 
  Country: None (occurrence: None)
  Receive Date: 20101026
  Receipt Date: 20101026
  Transmission Date: 20110411
  Serious: Yes (Hospitalization)
  Sender: FDA-Public Use
  Company Number: None

PATIENT
  Age: 17 Month
  Sex: Male
  Weight: 13.6079 kg

DRUGS (1)
  1. HYLAND'S TEETHING TABLETS [Suspect]
     Indication: TEETHING
     Dosage: 2-3 TABLETS 4 TIMES A DAY PO
     Route: 048
     Dates: start: 20090101, end: 20100310

REACTIONS (8)
  - DEHYDRATION [None]
  - FATIGUE [None]
  - FLUSHING [None]
  - GAIT DISTURBANCE [None]
  - LETHARGY [None]
  - PALLOR [None]
  - PRODUCT QUALITY ISSUE [None]
  - UNRESPONSIVE TO STIMULI [None]
